FAERS Safety Report 25025537 (Version 1)
Quarter: 2025Q1

REPORT INFORMATION
  Report Type: Spontaneous
  Country: US (occurrence: US)
  Receive Date: 20250228
  Receipt Date: 20250228
  Transmission Date: 20250408
  Serious: No
  Sender: MERCK SHARP & DOHME LLC
  Company Number: US-PFIZER INC-202400269806

PATIENT
  Age: 77 Year
  Sex: Female

DRUGS (6)
  1. TUCATINIB [Suspect]
     Active Substance: TUCATINIB
     Indication: Colorectal cancer
     Dosage: DOSE DESCRIPTION : 2 DF, 2X/DAY?DAILY DOSE : 4 DOSAGE FORM?CONCENTRATION: 150 MILLIGRAM
     Route: 048
  2. TUCATINIB [Suspect]
     Active Substance: TUCATINIB
     Indication: Colorectal cancer
     Dosage: DOSE DESCRIPTION : 150 MILLIGRAM, 2 TABLETS TWICE DAILY?DAILY DOSE : 1200 MILLIGRAM
     Route: 048
  3. TUCATINIB [Suspect]
     Active Substance: TUCATINIB
     Indication: Colorectal cancer
     Dosage: DOSE DESCRIPTION : 150MG,  1 TABLET TWICE DAILY?DAILY DOSE : 300 MILLIGRAM
     Route: 048
  4. TUCATINIB [Suspect]
     Active Substance: TUCATINIB
     Indication: Colorectal cancer
     Dosage: DOSE DESCRIPTION : 50MG, 1 TABLET TWICE DAILY?DAILY DOSE : 100 MILLIGRAM
     Route: 048
  5. TUCATINIB [Suspect]
     Active Substance: TUCATINIB
     Indication: Colorectal cancer
     Dosage: DOSE DESCRIPTION : 150MG AND 50 MG, TWICE DAILY
  6. TUCATINIB [Suspect]
     Active Substance: TUCATINIB
     Indication: Colorectal cancer
     Dosage: DOSE DESCRIPTION : 150MG,  1 TABLET TWICE DAILY?DAILY DOSE : 300 MILLIGRAM
     Route: 048

REACTIONS (1)
  - Off label use [Unknown]
